FAERS Safety Report 7963710-5 (Version None)
Quarter: 2011Q4

REPORT INFORMATION
  Report Type: 
  Country: None (occurrence: None)
  Receive Date: 20111208
  Receipt Date: 20111014
  Transmission Date: 20120403
  Serious: No
  Sender: FDA-Public Use
  Company Number: US-BAYER-2011-100341

PATIENT
  Age: 88 Year
  Sex: Male
  Weight: 93 kg

DRUGS (4)
  1. ANAPRIL [Concomitant]
  2. PROSTATE MEDICATION [Concomitant]
  3. DIURETICS [Concomitant]
  4. ALEVE (CAPLET) [Suspect]
     Indication: ARTHRITIS
     Dosage: 2 U, QD
     Route: 048
     Dates: start: 20110901, end: 20111013

REACTIONS (1)
  - THROAT IRRITATION [None]
